FAERS Safety Report 5146192-0 (Version None)
Quarter: 2006Q4

REPORT INFORMATION
  Report Type: 
  Country: None (occurrence: None)
  Receive Date: 20061106
  Receipt Date: 20061106
  Transmission Date: 20070319
  Serious: No
  Sender: FDA-Public Use
  Company Number: None

PATIENT
  Age: 45 Year
  Sex: Male
  Weight: 100 kg

DRUGS (1)
  1. WARFARIN SODIUM [Suspect]
     Dosage: 10 MG DAILY PO
     Route: 048
     Dates: start: 20060418, end: 20060508

REACTIONS (2)
  - EMBOLISM [None]
  - RASH PRURITIC [None]
